FAERS Safety Report 6667193-7 (Version None)
Quarter: 2010Q2

REPORT INFORMATION
  Report Type: 
  Country: None (occurrence: None)
  Receive Date: 20100405
  Receipt Date: 20100329
  Transmission Date: 20101027
  Serious: Yes (Life-Threatening, Hospitalization)
  Sender: FDA-Public Use
  Company Number: JP-ASTRAZENECA-2010SE14452

PATIENT
  Sex: Male
  Weight: 49 kg

DRUGS (8)
  1. CANDESARTAN CILEXETIL [Suspect]
     Indication: HYPERTENSION
     Route: 048
     Dates: end: 20060526
  2. BASEN [Concomitant]
     Indication: DIABETES MELLITUS
     Route: 048
     Dates: start: 20060526, end: 20060526
  3. CONIEL [Concomitant]
     Indication: HYPERTENSION
     Route: 048
     Dates: start: 20060526, end: 20060623
  4. LIPITOR [Concomitant]
     Indication: HYPERLIPIDAEMIA
     Route: 048
     Dates: start: 20060526, end: 20060623
  5. MEILAX [Concomitant]
     Indication: ANXIETY
     Route: 048
     Dates: start: 20060526, end: 20060623
  6. PANALDINE [Concomitant]
     Indication: CEREBRAL INFARCTION
     Route: 048
     Dates: start: 20060526, end: 20060623
  7. ANPLAG [Concomitant]
     Indication: CEREBRAL INFARCTION
     Route: 048
     Dates: start: 20060526, end: 20060623
  8. TEGRETOL [Concomitant]
     Indication: DRUG USE FOR UNKNOWN INDICATION
     Route: 048
     Dates: start: 20060526, end: 20060623

REACTIONS (1)
  - LARYNGEAL OEDEMA [None]
